FAERS Safety Report 8252138-9 (Version None)
Quarter: 2012Q2

REPORT INFORMATION
  Report Type: 
  Country: None (occurrence: None)
  Receive Date: 20120402
  Receipt Date: 20110311
  Transmission Date: 20120825
  Serious: No
  Sender: FDA-Public Use
  Company Number: US-ABBOTT-11P-163-0804291-00

PATIENT
  Sex: Male

DRUGS (1)
  1. TESTOSTERONE [Suspect]
     Indication: PRODUCT USED FOR UNKNOWN INDICATION
     Dosage: DAILY DOSE:  UNKNOWN, VIA PUMP, CONSUMER STATED HE HAD BEEN PRESCRIBED 5 G DAILY
     Route: 062

REACTIONS (3)
  - INCORRECT DOSE ADMINISTERED BY DEVICE [None]
  - EMOTIONAL DISORDER [None]
  - PUMP RESERVOIR ISSUE [None]
